FAERS Safety Report 16240421 (Version 1)
Quarter: 2019Q2

REPORT INFORMATION
  Report Type: Spontaneous
  Country: US (occurrence: US)
  Receive Date: 20190425
  Receipt Date: 20190425
  Transmission Date: 20190711
  Serious: Yes (Other)
  Sender: FDA-Public Use
  Company Number: US-ASTRAZENECA-2019SE50860

PATIENT
  Age: 62 Year
  Sex: Female

DRUGS (5)
  1. CARBOPLATIN/PACLITAXEL [Concomitant]
     Active Substance: CARBOPLATIN\PACLITAXEL
     Dates: start: 20150217, end: 20150602
  2. LYNPARZA [Suspect]
     Active Substance: OLAPARIB
     Route: 048
     Dates: start: 20171226, end: 20181221
  3. CARBOPLATIN/PACLITAXEL [Concomitant]
     Active Substance: CARBOPLATIN\PACLITAXEL
     Dates: start: 20140826, end: 20141216
  4. PACLITAXEL. [Concomitant]
     Active Substance: PACLITAXEL
     Dates: start: 20150323, end: 20150628
  5. CISPLAT/TAXOL [Concomitant]
     Dates: start: 20170808, end: 20181128

REACTIONS (1)
  - Myelodysplastic syndrome [Unknown]

NARRATIVE: CASE EVENT DATE: 20181217
